FAERS Safety Report 7979830-5 (Version None)
Quarter: 2011Q4

REPORT INFORMATION
  Report Type: 
  Country: None (occurrence: None)
  Receive Date: 20111214
  Receipt Date: 20111208
  Transmission Date: 20120403
  Serious: Yes (Death, Hospitalization)
  Sender: FDA-Public Use
  Company Number: US-ELI_LILLY_AND_COMPANY-US201112002242

PATIENT
  Age: 31 Year
  Sex: Male

DRUGS (2)
  1. NITROGLYCERIN [Concomitant]
     Indication: CARDIAC DISORDER
  2. CIALIS [Suspect]
     Indication: ERECTILE DYSFUNCTION
     Dosage: UNK
     Dates: start: 20070101, end: 20071226

REACTIONS (4)
  - CHEST PAIN [None]
  - CARDIAC FAILURE [None]
  - DIABETES MELLITUS [None]
  - DRUG INTERACTION [None]
